FAERS Safety Report 18526327 (Version 1)
Quarter: 2020Q4

REPORT INFORMATION
  Report Type: Spontaneous
  Country: US (occurrence: US)
  Receive Date: 20201120
  Receipt Date: 20201120
  Transmission Date: 20210114
  Serious: No
  Sender: FDA-Public Use
  Company Number: US-JNJFOC-20201111364

PATIENT
  Sex: Male
  Weight: .62 kg

DRUGS (3)
  1. DOPAMINE                           /00360702/ [Concomitant]
     Indication: HYPOTENSION
     Route: 065
  2. HYDROCORTISONE. [Concomitant]
     Active Substance: HYDROCORTISONE
     Indication: HYPOTENSION
     Route: 065
  3. PARACETAMOL [Suspect]
     Active Substance: ACETAMINOPHEN
     Indication: PATENT DUCTUS ARTERIOSUS
     Dosage: PHARMACEUTICAL INTERVENTION WAS IMPLEMENTED WITH 2 ROUNDS OF ACETAMINOPHEN
     Route: 065

REACTIONS (2)
  - Off label use [Unknown]
  - Product use in unapproved indication [Unknown]
